FAERS Safety Report 12362855 (Version 1)
Quarter: 2016Q2

REPORT INFORMATION
  Report Type: Spontaneous
  Country: US (occurrence: US)
  Receive Date: 20160512
  Receipt Date: 20160512
  Transmission Date: 20160815
  Serious: No
  Sender: FDA-Public Use
  Company Number: US-UCBSA-2015006110

PATIENT
  Age: 31 Year
  Sex: Female
  Weight: 58.96 kg

DRUGS (5)
  1. METHOTREXATE [Concomitant]
     Active Substance: METHOTREXATE
     Indication: PRODUCT USED FOR UNKNOWN INDICATION
  2. PLAQUENIL [Concomitant]
     Active Substance: HYDROXYCHLOROQUINE SULFATE
     Indication: PRODUCT USED FOR UNKNOWN INDICATION
  3. CIMZIA [Suspect]
     Active Substance: CERTOLIZUMAB PEGOL
     Indication: RHEUMATOID ARTHRITIS
     Dosage: 400 MG, EV 4 WEEKS, 200 MG PFS 2/PKG
     Route: 058
     Dates: start: 20130506, end: 20151215
  4. ACTEMRA [Concomitant]
     Active Substance: TOCILIZUMAB
     Indication: PRODUCT USED FOR UNKNOWN INDICATION
  5. FOLIC ACID. [Concomitant]
     Active Substance: FOLIC ACID
     Indication: PRODUCT USED FOR UNKNOWN INDICATION

REACTIONS (9)
  - Pigmentation disorder [Unknown]
  - Skin swelling [Unknown]
  - Dry skin [Unknown]
  - Pruritus generalised [Unknown]
  - Fatigue [Unknown]
  - Skin exfoliation [Unknown]
  - Erythema [Unknown]
  - Contusion [Unknown]
  - Impaired healing [Unknown]

NARRATIVE: CASE EVENT DATE: 2013
